FAERS Safety Report 7831781-2 (Version None)
Quarter: 2011Q4

REPORT INFORMATION
  Report Type: 
  Country: None (occurrence: None)
  Receive Date: 20111021
  Receipt Date: 20111019
  Transmission Date: 20120403
  Serious: Yes (Death, Hospitalization, Other)
  Sender: FDA-Public Use
  Company Number: DE-PFIZER INC-2010018725

PATIENT
  Age: 61 Year
  Sex: Male
  Weight: 70.4 kg

DRUGS (9)
  1. SUNITINIB MALATE [Suspect]
     Indication: OESOPHAGEAL ADENOCARCINOMA
     Dosage: 25 MG, DAILY, IN 4 WEEK CYCLES
     Route: 048
     Dates: start: 20100120, end: 20100203
  2. FLUOROURACIL [Suspect]
     Dosage: 3800 MG, EVERY 2 WEEKS
     Route: 042
     Dates: start: 20100120, end: 20100203
  3. ERYTHROMYCIN STEARATE [Concomitant]
     Indication: GASTRIC DISORDER
     Dosage: 500 MG, 1X/DAY
     Route: 048
     Dates: end: 20100118
  4. IRINOTECAN HCL [Suspect]
     Dosage: 340 MG, EVERY 2 WEEKS
     Route: 042
     Dates: start: 20100120, end: 20100203
  5. DEXAMETHASONE [Concomitant]
     Indication: DECREASED APPETITE
     Dosage: 8 MG, 1X/DAY
     Route: 048
     Dates: end: 20100216
  6. LEUCOVORIN CALCIUM [Suspect]
     Dosage: 750 MG, EVERY 2 WEEKS
     Route: 042
     Dates: start: 20100120, end: 20100203
  7. FLUOROURACIL [Suspect]
     Dosage: 750 MG, EVERY 2 WEEKS
     Route: 040
     Dates: start: 20100120, end: 20100203
  8. FUROSEMIDE [Concomitant]
     Indication: CARDIAC FAILURE
     Dosage: 40 MG, UNK
     Route: 048
  9. ENOXAPARIN [Concomitant]
     Indication: VENOUS THROMBOSIS
     Dosage: 0.3 ML, UNK
     Route: 058
     Dates: end: 20100214

REACTIONS (5)
  - LEUKOPENIA [None]
  - HYPOKALAEMIA [None]
  - RENAL FAILURE ACUTE [None]
  - GENERAL PHYSICAL HEALTH DETERIORATION [None]
  - STAPHYLOCOCCAL SEPSIS [None]
